FAERS Safety Report 13165114 (Version 1)
Quarter: 2017Q1

REPORT INFORMATION
  Report Type: Report from Study
  Country: US (occurrence: US)
  Receive Date: 20170130
  Receipt Date: 20170130
  Transmission Date: 20170428
  Serious: Yes (Other)
  Sender: FDA-Public Use
  Company Number: US-JNJFOC-20170122753

PATIENT

DRUGS (3)
  1. SODIUM FLUORIDE. [Suspect]
     Active Substance: SODIUM FLUORIDE
     Indication: PRODUCT USED FOR UNKNOWN INDICATION
     Route: 048
  2. BLINDED; EUCALYPTOL/MENTHOL/METHYL SALICYLATE/THYMOL [Suspect]
     Active Substance: EUCALYPTOL\MENTHOL\METHYL SALICYLATE\THYMOL
     Indication: PRODUCT USED FOR UNKNOWN INDICATION
     Route: 048
  3. FRESHBURST LISTERINE MOUTHRINSE WITH FLUORIDE [Suspect]
     Active Substance: EUCALYPTOL\MENTHOL\METHYL SALICYLATE\SODIUM FLUORIDE\THYMOL
     Indication: PRODUCT USED FOR UNKNOWN INDICATION
     Route: 048

REACTIONS (1)
  - Chest pain [Unknown]
